FAERS Safety Report 11792821 (Version 5)
Quarter: 2015Q4

REPORT INFORMATION
  Report Type: Spontaneous
  Country: US (occurrence: US)
  Receive Date: 20151202
  Receipt Date: 20151202
  Transmission Date: 20160305
  Serious: Yes (Hospitalization, Other)
  Sender: FDA-Public Use
  Company Number: US-DSJP-DSU-2015-118909

PATIENT

DRUGS (3)
  1. BENICAR [Suspect]
     Active Substance: OLMESARTAN MEDOXOMIL
     Dosage: 5 MG, QD
     Route: 048
     Dates: start: 200904, end: 201403
  2. BENICAR [Suspect]
     Active Substance: OLMESARTAN MEDOXOMIL
     Dosage: 10 MG, QD
     Route: 048
     Dates: start: 20140324
  3. BENICAR [Suspect]
     Active Substance: OLMESARTAN MEDOXOMIL
     Indication: HYPERTENSION
     Dosage: 20 MG, QD

REACTIONS (12)
  - Rectal haemorrhage [Unknown]
  - Malabsorption [Unknown]
  - Proctalgia [Unknown]
  - Drug administration error [Unknown]
  - Gastritis [Not Recovered/Not Resolved]
  - Diverticulitis [Unknown]
  - Haemorrhoid operation [Unknown]
  - Diverticulum intestinal [Unknown]
  - Acute kidney injury [Unknown]
  - Hiatus hernia [Not Recovered/Not Resolved]
  - Large intestine polyp [Unknown]
  - Anal fistula [Unknown]

NARRATIVE: CASE EVENT DATE: 201104
